FAERS Safety Report 10489305 (Version 2)
Quarter: 2014Q4

REPORT INFORMATION
  Report Type: Report from Study
  Country: TW (occurrence: TW)
  Receive Date: 20141002
  Receipt Date: 20141003
  Transmission Date: 20150528
  Serious: Yes (Death, Hospitalization, Other)
  Sender: FDA-Public Use
  Company Number: TW-ACTELION-A-CH2014-105711

PATIENT
  Age: 42 Year
  Sex: Female

DRUGS (3)
  1. TRACLEER [Suspect]
     Active Substance: BOSENTAN\BOSENTAN MONOHYDRATE
     Indication: PULMONARY ARTERIAL HYPERTENSION
     Dosage: UNK, BID
     Route: 048
     Dates: start: 200708
  2. REVATIO [Concomitant]
     Active Substance: SILDENAFIL CITRATE
     Dosage: UNK
     Dates: start: 201112
  3. REMODULIN [Concomitant]
     Active Substance: TREPROSTINIL
     Dosage: UNK
     Dates: start: 20130307

REACTIONS (24)
  - Weight decreased [Unknown]
  - Pericardial effusion [Unknown]
  - Rhinorrhoea [Unknown]
  - Haemoglobin decreased [Not Recovered/Not Resolved]
  - Sputum discoloured [Unknown]
  - Haematocrit decreased [Not Recovered/Not Resolved]
  - Blood product transfusion [Unknown]
  - Explorative laparotomy [Unknown]
  - Cardiopulmonary failure [Fatal]
  - Pneumonia [Fatal]
  - Decreased appetite [Unknown]
  - Lung consolidation [Fatal]
  - Shock [Not Recovered/Not Resolved]
  - Dyspnoea [Fatal]
  - Packed red blood cell transfusion [Unknown]
  - Pyrexia [Fatal]
  - Productive cough [Unknown]
  - Ovarian haemorrhage [Unknown]
  - Abdominal pain upper [Unknown]
  - Post procedural haemorrhage [Not Recovered/Not Resolved]
  - Cardiac arrest [Fatal]
  - Intra-abdominal haemorrhage [Unknown]
  - Prothrombin time prolonged [Not Recovered/Not Resolved]
  - Platelet count decreased [Not Recovered/Not Resolved]

NARRATIVE: CASE EVENT DATE: 20140912
